FAERS Safety Report 5938421-8 (Version None)
Quarter: 2008Q4

REPORT INFORMATION
  Report Type: 
  Country: None (occurrence: None)
  Receive Date: 20081103
  Receipt Date: 20081023
  Transmission Date: 20090506
  Serious: Yes (Other)
  Sender: FDA-Public Use
  Company Number: US-JNJFOC-20081006304

PATIENT
  Sex: Female
  Weight: 87.54 kg

DRUGS (3)
  1. REMICADE [Suspect]
     Dosage: DOSE: 3 VIALS
     Route: 042
  2. REMICADE [Suspect]
     Indication: CROHN'S DISEASE
     Route: 042
  3. TYLENOL [Concomitant]
     Indication: PREMEDICATION
     Dosage: DOSE: 2

REACTIONS (3)
  - ANAPHYLACTIC SHOCK [None]
  - COLITIS ULCERATIVE [None]
  - INFUSION RELATED REACTION [None]
